FAERS Safety Report 24780040 (Version 1)
Quarter: 2024Q4

REPORT INFORMATION
  Report Type: Spontaneous
  Country: US (occurrence: US)
  Receive Date: 20241227
  Receipt Date: 20241227
  Transmission Date: 20250115
  Serious: Yes (Other)
  Sender: TAKEDA
  Company Number: US-TAKEDA-2024TUS126565

PATIENT
  Age: 20 Month
  Sex: Male
  Weight: 13 kg

DRUGS (1)
  1. GAMMAGARD LIQUID [Suspect]
     Active Substance: HUMAN IMMUNOGLOBULIN G
     Indication: Kawasaki^s disease
     Dosage: 26 GRAM, QD
     Dates: start: 20230216

REACTIONS (3)
  - Haemolysis [Unknown]
  - Coombs test positive [Unknown]
  - Anaemia [Unknown]
